FAERS Safety Report 7523080-3 (Version None)
Quarter: 2011Q2

REPORT INFORMATION
  Report Type: 
  Country: None (occurrence: None)
  Receive Date: 20110525
  Receipt Date: 20110314
  Transmission Date: 20111010
  Serious: Yes (Hospitalization)
  Sender: FDA-Public Use
  Company Number: DSA_45175_2011

PATIENT
  Sex: Female

DRUGS (3)
  1. APLENZIN [Suspect]
     Indication: DEPRESSION
     Dosage: LOWEST  DOSE, (522MG IN THE MORNING),
     Dates: start: 20110101
  2. APLENZIN [Suspect]
     Indication: DEPRESSION
     Dosage: LOWEST  DOSE, (522MG IN THE MORNING),
     Dates: start: 20110101, end: 20110116
  3. B12-VITAMIN [Concomitant]

REACTIONS (2)
  - LOSS OF CONSCIOUSNESS [None]
  - CONVULSION [None]
